FAERS Safety Report 7333138-X (Version None)
Quarter: 2011Q1

REPORT INFORMATION
  Report Type: 
  Country: None (occurrence: None)
  Receive Date: 20110222
  Receipt Date: 20110203
  Transmission Date: 20110831
  Serious: No
  Sender: FDA-Public Use
  Company Number: JP-2011-10202

PATIENT
  Age: 80 Year
  Sex: Female

DRUGS (8)
  1. DILTIAZEM HYDROCHLORIDE [Concomitant]
  2. LIPITOR [Concomitant]
  3. LASIX [Concomitant]
  4. ISOSORBIDE MONONITRATE [Concomitant]
  5. SAMSCA (TOLVAPTAN) TABLET, 15MG MILLIGRAM(S) [Suspect]
     Indication: ANGINA PECTORIS
     Dosage: 15 MG MILLIGRAM(S), DAILY DOSE, ORAL
     Route: 048
     Dates: start: 20110128
  6. WARFARIN (WARFARIN POTASSIUM) [Concomitant]
  7. ALDACTONE [Concomitant]
  8. HANP (CARPERITIDE) [Concomitant]

REACTIONS (1)
  - HYPERNATRAEMIA [None]
